FAERS Safety Report 5834672-1 (Version None)
Quarter: 2008Q3

REPORT INFORMATION
  Report Type: 
  Country: None (occurrence: None)
  Receive Date: 20080805
  Receipt Date: 20080731
  Transmission Date: 20090109
  Serious: Yes (Hospitalization)
  Sender: FDA-Public Use
  Company Number: CH-MERCK-0807CHE00028

PATIENT
  Age: 57 Year
  Sex: Female

DRUGS (17)
  1. FOSAMAX [Suspect]
     Indication: OSTEOPOROSIS
     Route: 048
     Dates: start: 19950101, end: 20051001
  2. IBANDRONATE SODIUM [Suspect]
     Indication: OSTEOPOROSIS
     Route: 048
     Dates: start: 20051001
  3. ESOMEPRAZOLE MAGNESIUM [Suspect]
     Route: 048
  4. CALCIUM CARBONATE AND CHOLECALCIFEROL [Concomitant]
     Indication: OSTEOPOROSIS
     Route: 048
  5. POLYETHYLENE GLYCOL 3350 AND POTASSIUM CHLORIDE AND SODIUM BICARBONATE [Concomitant]
     Indication: CONSTIPATION
     Route: 048
  6. FLUTICASONE PROPIONATE [Concomitant]
     Indication: ASTHMA
  7. ACETAMINOPHEN [Concomitant]
     Indication: PAIN
     Route: 048
  8. TIOTROPIUM BROMIDE [Concomitant]
  9. ALPRAZOLAM [Concomitant]
     Route: 048
  10. CITALOPRAM HYDROBROMIDE [Concomitant]
     Indication: DEPRESSION
     Route: 048
  11. FLURAZEPAM HYDROCHLORIDE [Concomitant]
     Route: 048
  12. MONTELUKAST SODIUM [Concomitant]
     Indication: ASTHMA
     Route: 048
  13. FLUTICASONE PROPIONATE AND SALMETEROL XINAFOATE [Concomitant]
     Indication: ASTHMA
  14. PREDNISONE [Suspect]
     Indication: CHRONIC OBSTRUCTIVE PULMONARY DISEASE
     Route: 048
  15. MORPHINE SULFATE [Concomitant]
     Indication: PAIN
     Route: 048
  16. ATORVASTATIN CALCIUM [Concomitant]
     Indication: HYPERCHOLESTEROLAEMIA
     Route: 048
  17. ALBUTEROL SULFATE AND IPRATROPIUM BROMIDE [Concomitant]
     Indication: ASTHMA

REACTIONS (1)
  - FEMUR FRACTURE [None]
